FAERS Safety Report 6965583-6 (Version None)
Quarter: 2010Q3

REPORT INFORMATION
  Report Type: 
  Country: None (occurrence: None)
  Receive Date: 20100903
  Receipt Date: 20100824
  Transmission Date: 20110219
  Serious: Yes (Death, Hospitalization, Other)
  Sender: FDA-Public Use
  Company Number: DE-ROCHE-631113

PATIENT
  Sex: Male
  Weight: 133 kg

DRUGS (4)
  1. MYCOPHENOLATE MOFETIL [Suspect]
     Route: 065
     Dates: start: 20080521, end: 20080720
  2. TACROLIMUS [Suspect]
     Route: 065
     Dates: end: 20081204
  3. HYDROCORTISONE [Concomitant]
     Indication: IMMUNOSUPPRESSION
     Dosage: FORM: INFUSION
  4. VALCYTE [Concomitant]
     Route: 048

REACTIONS (13)
  - BILE DUCT NECROSIS [None]
  - BILIARY ISCHAEMIA [None]
  - BRONCHOPULMONARY ASPERGILLOSIS [None]
  - CARDIAC FAILURE [None]
  - CHOLANGITIS SCLEROSING [None]
  - CONVULSION [None]
  - HYPERURICAEMIA [None]
  - LIP AND/OR ORAL CAVITY CANCER [None]
  - LYMPHOEDEMA [None]
  - PANCYTOPENIA [None]
  - RETROPERITONEAL HAEMATOMA [None]
  - SEPSIS [None]
  - TACHYARRHYTHMIA [None]
